FAERS Safety Report 6735483-5 (Version None)
Quarter: 2010Q2

REPORT INFORMATION
  Report Type: 
  Country: None (occurrence: None)
  Receive Date: 20100521
  Receipt Date: 20100510
  Transmission Date: 20101027
  Serious: Yes (Hospitalization, Other)
  Sender: FDA-Public Use
  Company Number: CA-PURDUE-CAN-2010-0001360

PATIENT
  Sex: Male

DRUGS (3)
  1. OXYCONTIN [Suspect]
     Indication: PAIN
     Dosage: 20 MG, BID
     Route: 048
     Dates: start: 20000301
  2. OXYCONTIN [Suspect]
     Dosage: 80 MG, BID
     Route: 048
  3. OXYCONTIN [Suspect]
     Dosage: 400 MG, DAILY
     Route: 048

REACTIONS (18)
  - ANXIETY [None]
  - ASTHENIA [None]
  - CONVULSION [None]
  - DEPRESSION [None]
  - DIZZINESS [None]
  - DRUG DEPENDENCE [None]
  - DRUG WITHDRAWAL SYNDROME [None]
  - HYPOAESTHESIA [None]
  - INSOMNIA [None]
  - INTENTIONAL OVERDOSE [None]
  - LOSS OF EMPLOYMENT [None]
  - MENTAL DISORDER [None]
  - MOOD SWINGS [None]
  - MUSCLE TWITCHING [None]
  - PARTNER STRESS [None]
  - SOCIAL PROBLEM [None]
  - SUICIDAL IDEATION [None]
  - SUICIDE ATTEMPT [None]
